FAERS Safety Report 17850428 (Version 2)
Quarter: 2020Q2

REPORT INFORMATION
  Report Type: Spontaneous
  Country: FR (occurrence: FR)
  Receive Date: 20200602
  Receipt Date: 20200605
  Transmission Date: 20200714
  Serious: Yes (Hospitalization)
  Sender: FDA-Public Use
  Company Number: FR-CELGENEUS-FRA-20200509081

PATIENT
  Age: 77 Year
  Sex: Female
  Weight: 68 kg

DRUGS (23)
  1. DEXAMETHASONE. [Suspect]
     Active Substance: DEXAMETHASONE
     Indication: PLASMA CELL MYELOMA
     Dosage: 20 MILLIGRAM
     Route: 048
     Dates: start: 20190913
  2. SULFAMETHOXAZOLE W/TRIMETHOPRIM [Concomitant]
     Active Substance: SULFAMETHOXAZOLE\TRIMETHOPRIM
     Indication: PNEUMOCYSTIS JIROVECII PNEUMONIA
     Dosage: 800 MILLIGRAM (342.8571 MG)
     Route: 048
     Dates: start: 20160823
  3. AMOXICILLINE [Concomitant]
     Active Substance: AMOXICILLIN
     Indication: INFECTION
     Dosage: 2 GRAM
     Route: 048
     Dates: start: 20160823
  4. BISOPROLOL HEMIFUMARATE [Concomitant]
     Active Substance: BISOPROLOL FUMARATE
     Indication: HYPERTENSION
     Dosage: 5 MILLIGRAM
     Route: 048
     Dates: start: 2007
  5. PARACETAMOL [Concomitant]
     Active Substance: ACETAMINOPHEN
     Indication: BACK PAIN
     Dosage: 3 GRAM
     Route: 048
     Dates: start: 201607
  6. VENLAFAXINE [Concomitant]
     Active Substance: VENLAFAXINE HYDROCHLORIDE
     Indication: DEPRESSION
     Dosage: 3.75 MILLIGRAM
     Route: 048
     Dates: start: 20180827
  7. ACIDE URSODESOXYCHOLIQUE BIOGARAN [Concomitant]
     Indication: CHOLECYSTECTOMY
     Dosage: 250 MILLIGRAM
     Route: 048
     Dates: start: 2004
  8. ACETYLLEUCINE [Concomitant]
     Active Substance: ACETYLLEUCINE
     Indication: HYPERTENSION
     Dosage: 1500 MILLIGRAM
     Route: 048
     Dates: start: 1998
  9. LENALIDOMIDE [Suspect]
     Active Substance: LENALIDOMIDE
     Dosage: 15 MILLIGRAM
     Route: 048
     Dates: end: 20191209
  10. DARATUMUMAB [Concomitant]
     Active Substance: DARATUMUMAB
     Dosage: 16 MILLIGRAM/KILOGRAM
     Route: 041
     Dates: end: 20191119
  11. FENTANYL. [Concomitant]
     Active Substance: FENTANYL
     Indication: PRODUCT USED FOR UNKNOWN INDICATION
     Dosage: 3.75 MILLIGRAM
     Route: 045
     Dates: start: 20180827
  12. ACIDE ZOLEDRONIQUE [Concomitant]
     Active Substance: ZOLEDRONIC ACID
     Indication: OSTEOLYSIS
     Dosage: 4 MILLIGRAM
     Route: 041
     Dates: start: 20170523
  13. LENALIDOMIDE [Suspect]
     Active Substance: LENALIDOMIDE
     Indication: PLASMA CELL MYELOMA
     Dosage: 15 MILLIGRAM
     Route: 048
     Dates: start: 20160913
  14. DEXAMETHASONE. [Suspect]
     Active Substance: DEXAMETHASONE
     Dosage: 20 MILLIGRAM
     Route: 048
     Dates: end: 20191210
  15. ZOPICLONE [Concomitant]
     Active Substance: ZOPICLONE
     Indication: DEPRESSION
     Dosage: 3.75 MILLIGRAM
     Route: 048
     Dates: start: 20180827
  16. SMECTA [Concomitant]
     Active Substance: MONTMORILLONITE
     Indication: DIARRHOEA
     Dosage: 3 SACHETS
     Route: 048
     Dates: start: 20191119
  17. LEDERFOLINE [Concomitant]
     Active Substance: LEUCOVORIN CALCIUM
     Indication: FOLATE DEFICIENCY
     Dosage: 25 MILLIGRAM (7.1429 MG)
     Route: 048
     Dates: start: 20180823
  18. ACIDE ACETYLSALICYLIQUE [Concomitant]
     Active Substance: ASPIRIN
     Indication: HYPERTENSION
     Dosage: 75 MILLIGRAM
     Route: 048
     Dates: start: 1988
  19. NALOXEGOL [Concomitant]
     Active Substance: NALOXEGOL
     Indication: CONSTIPATION
     Dosage: 25 MILLIGRAM
     Route: 048
     Dates: start: 20180827
  20. DARATUMUMAB [Concomitant]
     Active Substance: DARATUMUMAB
     Indication: PLASMA CELL MYELOMA
     Dosage: 16 MILLIGRAM
     Route: 041
     Dates: start: 20160913
  21. VALACICLOVIR [Concomitant]
     Active Substance: VALACYCLOVIR HYDROCHLORIDE
     Indication: VARICELLA ZOSTER VIRUS INFECTION
     Dosage: 1000 MILLIGRAM
     Route: 048
     Dates: start: 20160823
  22. METOCLOPRAMIDE. [Concomitant]
     Active Substance: METOCLOPRAMIDE
     Indication: NAUSEA
     Dosage: 40 MILLIGRAM
     Route: 048
     Dates: start: 20160927
  23. PANTOPRAZOLE [Concomitant]
     Active Substance: PANTOPRAZOLE
     Indication: ABDOMINAL PAIN UPPER
     Dosage: 20 MILLIGRAM
     Route: 048
     Dates: start: 20180827

REACTIONS (1)
  - Dementia [Recovered/Resolved]

NARRATIVE: CASE EVENT DATE: 20191217
